FAERS Safety Report 6764191-X (Version None)
Quarter: 2010Q2

REPORT INFORMATION
  Report Type: 
  Country: None (occurrence: None)
  Receive Date: 20100610
  Receipt Date: 20100603
  Transmission Date: 20101027
  Serious: Yes (Other)
  Sender: FDA-Public Use
  Company Number: A0864139A

PATIENT
  Sex: Female

DRUGS (2)
  1. SERETIDE [Suspect]
     Indication: ASTHMA
     Route: 055
     Dates: start: 20100513, end: 20100602
  2. SALBUTAMOL [Concomitant]

REACTIONS (3)
  - ABDOMINAL DISTENSION [None]
  - APNOEA [None]
  - TREATMENT NONCOMPLIANCE [None]
